FAERS Safety Report 7142402-9 (Version None)
Quarter: 2010Q4

REPORT INFORMATION
  Report Type: 
  Country: None (occurrence: None)
  Receive Date: 20101207
  Receipt Date: 20101203
  Transmission Date: 20110411
  Serious: Yes (Other)
  Sender: FDA-Public Use
  Company Number: US-PFIZER INC-2010164137

PATIENT
  Sex: Female
  Weight: 63 kg

DRUGS (2)
  1. GENOTROPIN [Suspect]
     Indication: HYPOPITUITARISM
     Dosage: 2 MG, DAILY
     Route: 058
     Dates: start: 20100401, end: 20101101
  2. LEVOTHYROXINE [Concomitant]
     Indication: THYROID DISORDER
     Dosage: UNK

REACTIONS (8)
  - ARTHRALGIA [None]
  - BONE PAIN [None]
  - BREAST PAIN [None]
  - BREAST SWELLING [None]
  - CRYING [None]
  - DIABETES MELLITUS [None]
  - HYPOAESTHESIA [None]
  - OEDEMA PERIPHERAL [None]
